FAERS Safety Report 19720283 (Version 8)
Quarter: 2025Q3

REPORT INFORMATION
  Report Type: Report from Study
  Country: US (occurrence: US)
  Receive Date: 20210818
  Receipt Date: 20250916
  Transmission Date: 20251020
  Serious: Yes (Hospitalization)
  Sender: TAKEDA
  Company Number: US-TAKEDA-US202016414

PATIENT
  Sex: Female
  Weight: 64 kg

DRUGS (22)
  1. LANADELUMAB [Suspect]
     Active Substance: LANADELUMAB
     Indication: Hereditary angioedema
     Dosage: 300 MILLIGRAM, Q2WEEKS
     Dates: start: 20180927
  2. LANADELUMAB [Suspect]
     Active Substance: LANADELUMAB
     Dosage: 300 MILLIGRAM, Q2WEEKS
     Dates: start: 20210201
  3. LANADELUMAB [Suspect]
     Active Substance: LANADELUMAB
     Dosage: UNK UNK, Q2WEEKS
  4. FIRAZYR [Suspect]
     Active Substance: ICATIBANT ACETATE
     Indication: Immune system disorder
  5. FIRAZYR [Suspect]
     Active Substance: ICATIBANT ACETATE
     Indication: Hereditary angioedema
  6. CINRYZE [Suspect]
     Active Substance: HUMAN C1-ESTERASE INHIBITOR
     Indication: Hereditary angioedema
     Dosage: 1000 INTERNATIONAL UNIT, Q72H
  7. CINRYZE [Suspect]
     Active Substance: HUMAN C1-ESTERASE INHIBITOR
  8. CINRYZE [Suspect]
     Active Substance: HUMAN C1-ESTERASE INHIBITOR
  9. ASPIRIN [Concomitant]
     Active Substance: ASPIRIN
  10. CYCLOBENZAPRINE [Concomitant]
     Active Substance: CYCLOBENZAPRINE
  11. AMOXICILLIN\CLAVULANIC ACID [Concomitant]
     Active Substance: AMOXICILLIN\CLAVULANIC ACID
  12. LEVAQUIN [Concomitant]
     Active Substance: LEVOFLOXACIN
  13. NEURONTIN [Concomitant]
     Active Substance: GABAPENTIN
  14. TRAMADOL [Concomitant]
     Active Substance: TRAMADOL
  15. DANAZOL [Concomitant]
     Active Substance: DANAZOL
  16. LORAZEPAM [Concomitant]
     Active Substance: LORAZEPAM
  17. TRAZODONE [Concomitant]
     Active Substance: TRAZODONE HYDROCHLORIDE
  18. ALLEGRA D-12 HOUR [Concomitant]
     Active Substance: FEXOFENADINE HYDROCHLORIDE\PSEUDOEPHEDRINE HYDROCHLORIDE
  19. TYLENOL 8HR [Concomitant]
     Active Substance: ACETAMINOPHEN
  20. VITAMIN D2 [Concomitant]
     Active Substance: ERGOCALCIFEROL
  21. DULOXETINE [Concomitant]
     Active Substance: DULOXETINE
  22. FAMOTIDINE [Concomitant]
     Active Substance: FAMOTIDINE

REACTIONS (7)
  - Hereditary angioedema [Recovered/Resolved]
  - Pruritus [Unknown]
  - Product reconstitution quality issue [Unknown]
  - Rash [Recovered/Resolved]
  - Fatigue [Recovered/Resolved]
  - Nasopharyngitis [Recovered/Resolved]
  - Headache [Unknown]
